FAERS Safety Report 8612065-1 (Version None)
Quarter: 2012Q3

REPORT INFORMATION
  Report Type: 
  Country: None (occurrence: None)
  Receive Date: 20120822
  Receipt Date: 20120813
  Transmission Date: 20120928
  Serious: No
  Sender: FDA-Public Use
  Company Number: US-ASTRAZENECA-2012SE57124

PATIENT
  Age: 70 Year
  Sex: Female
  Weight: 88.5 kg

DRUGS (10)
  1. SEROQUEL [Suspect]
     Route: 048
     Dates: start: 20120101
  2. LITHIUM CARBONATE [Concomitant]
     Indication: BIPOLAR DISORDER
  3. SEROQUEL [Suspect]
     Indication: SLEEP DISORDER
     Route: 048
     Dates: start: 19970101, end: 20070101
  4. CYMBALTA [Concomitant]
     Indication: ARTHRALGIA
  5. SEROQUEL [Suspect]
     Route: 048
     Dates: start: 20110101, end: 20120101
  6. DIOVAN [Concomitant]
     Indication: BLOOD PRESSURE ABNORMAL
  7. CYMBALTA [Concomitant]
     Indication: DEPRESSION
  8. CLONIDINE [Concomitant]
     Indication: HOT FLUSH
  9. EFFEXOR XR [Concomitant]
  10. SEROQUEL [Suspect]
     Route: 048
     Dates: start: 20070101, end: 20110101

REACTIONS (5)
  - ARTHRALGIA [None]
  - OFF LABEL USE [None]
  - INSOMNIA [None]
  - HOT FLUSH [None]
  - INTENTIONAL DRUG MISUSE [None]
